FAERS Safety Report 5402493-X (Version None)
Quarter: 2007Q3

REPORT INFORMATION
  Report Type: 
  Country: None (occurrence: None)
  Receive Date: 20070801
  Receipt Date: 20060731
  Transmission Date: 20080115
  Serious: No
  Sender: FDA-Public Use
  Company Number: A0614191A

PATIENT
  Age: 49 Year
  Sex: Female

DRUGS (4)
  1. IMITREX [Suspect]
     Indication: MIGRAINE
     Dosage: 25MG AS REQUIRED
     Route: 048
     Dates: start: 19950701
  2. IMITREX [Suspect]
     Route: 045
     Dates: start: 19970101, end: 19970101
  3. ALBUTEROL [Concomitant]
  4. FLOVENT [Concomitant]

REACTIONS (2)
  - THROAT IRRITATION [None]
  - VOMITING [None]
